FAERS Safety Report 22175880 (Version 1)
Quarter: 2023Q2

REPORT INFORMATION
  Report Type: Spontaneous
  Country: US (occurrence: None)
  Receive Date: 20230403
  Receipt Date: 20230403
  Transmission Date: 20230722
  Serious: No
  Sender: FDA-Public Use
  Company Number: None

PATIENT
  Age: 47 Year
  Sex: Female

DRUGS (1)
  1. TUBERCULIN, TINE TEST [Suspect]
     Active Substance: TUBERCULIN, TINE TEST

REACTIONS (1)
  - Rash [None]

NARRATIVE: CASE EVENT DATE: 20230403
